FAERS Safety Report 17864329 (Version 1)
Quarter: 2020Q2

REPORT INFORMATION
  Report Type: Spontaneous
  Country: US (occurrence: US)
  Receive Date: 20200605
  Receipt Date: 20200605
  Transmission Date: 20200714
  Serious: No
  Sender: FDA-Public Use
  Company Number: US-BAYER-2020-106229

PATIENT
  Age: 76 Year
  Sex: Female

DRUGS (1)
  1. MIRALAX [Suspect]
     Active Substance: POLYETHYLENE GLYCOL 3350
     Indication: GASTROINTESTINAL DISORDER
     Dosage: THE RECOMMENDED DOSE DOSE
     Route: 048
     Dates: start: 20200603, end: 20200603

REACTIONS (3)
  - Dizziness [Unknown]
  - Nausea [Unknown]
  - Headache [Not Recovered/Not Resolved]
